FAERS Safety Report 10908356 (Version 1)
Quarter: 2015Q1

REPORT INFORMATION
  Report Type: Spontaneous
  Country: US (occurrence: US)
  Receive Date: 20150312
  Receipt Date: 20150312
  Transmission Date: 20150721
  Serious: No
  Sender: FDA-Public Use
  Company Number: US-SA-2015SA024072

PATIENT
  Age: 92 Year
  Sex: Male

DRUGS (2)
  1. ELITEK [Suspect]
     Active Substance: RASBURICASE
     Indication: HYPERURICAEMIA
     Route: 042
     Dates: start: 20150212, end: 20150212
  2. ELITEK [Suspect]
     Active Substance: RASBURICASE
     Indication: HYPERURICAEMIA
     Route: 042
     Dates: start: 20150217, end: 20150217

REACTIONS (1)
  - Blood uric acid abnormal [Not Recovered/Not Resolved]
